FAERS Safety Report 9983852 (Version 6)
Quarter: 2014Q4

REPORT INFORMATION
  Report Type: Spontaneous
  Country: US (occurrence: US)
  Receive Date: 20140307
  Receipt Date: 20141017
  Transmission Date: 20150529
  Serious: Yes (Hospitalization, Other)
  Sender: FDA-Public Use
  Company Number: US-009507513-1403USA001529

PATIENT
  Sex: Female
  Weight: 94.33 kg

DRUGS (5)
  1. FOSAMAX [Suspect]
     Active Substance: ALENDRONATE SODIUM
     Dosage: 5 MG, QD
     Route: 048
     Dates: start: 19990601, end: 19991018
  2. CORTICOSTEROIDS (UNSPECIFIED) [Concomitant]
     Active Substance: UNSPECIFIED INGREDIENT
     Dosage: UNK
     Dates: start: 1994
  3. FOSAMAX [Suspect]
     Active Substance: ALENDRONATE SODIUM
     Dosage: 10 MG, QD
     Route: 048
     Dates: start: 19960604
  4. PREDNISONE. [Concomitant]
     Active Substance: PREDNISONE
     Dosage: 6-10 MG, QD
     Route: 048
     Dates: start: 199606
  5. FOSAMAX [Suspect]
     Active Substance: ALENDRONATE SODIUM
     Indication: OSTEOPOROSIS
     Dosage: 70 MG, QW
     Route: 048
     Dates: start: 20010706, end: 200706

REACTIONS (26)
  - Apicectomy [Unknown]
  - Ankle fracture [Unknown]
  - Foot fracture [Unknown]
  - Hypothyroidism [Unknown]
  - Femur fracture [Recovered/Resolved]
  - Blood cholesterol increased [Unknown]
  - Irritable bowel syndrome [Unknown]
  - Blood glucose increased [Unknown]
  - Hot flush [Unknown]
  - Intramedullary rod insertion [Unknown]
  - Femur fracture [Unknown]
  - Tooth impacted [Unknown]
  - Endodontic procedure [Unknown]
  - Menometrorrhagia [Unknown]
  - Sleep apnoea syndrome [Unknown]
  - Dysphagia [Unknown]
  - Low turnover osteopathy [Unknown]
  - Hypertension [Unknown]
  - Endometrial ablation [Unknown]
  - Tachycardia [Unknown]
  - Diarrhoea [Unknown]
  - Vitamin D decreased [Unknown]
  - Secondary adrenocortical insufficiency [Unknown]
  - Impaired healing [Unknown]
  - Arthroscopy [Unknown]
  - Dyspepsia [Unknown]

NARRATIVE: CASE EVENT DATE: 19961007
